FAERS Safety Report 14354586 (Version 1)
Quarter: 2018Q1

REPORT INFORMATION
  Report Type: Spontaneous
  Country: US (occurrence: US)
  Receive Date: 20180104
  Receipt Date: 20180104
  Transmission Date: 20180509
  Serious: Yes (Other)
  Sender: FDA-Public Use
  Company Number: None

PATIENT
  Age: 51 Year
  Sex: Female

DRUGS (1)
  1. REVLIMID [Suspect]
     Active Substance: LENALIDOMIDE
     Indication: PLASMA CELL MYELOMA
     Route: 048
     Dates: start: 20171116

REACTIONS (5)
  - Therapy change [None]
  - Therapy cessation [None]
  - Rash generalised [None]
  - Diarrhoea [None]
  - Swelling face [None]

NARRATIVE: CASE EVENT DATE: 20171124
